FAERS Safety Report 15117090 (Version 1)
Quarter: 2018Q2

REPORT INFORMATION
  Report Type: Spontaneous
  Country: US (occurrence: US)
  Receive Date: 20180612
  Receipt Date: 20180612
  Transmission Date: 20180711
  Serious: No
  Sender: FDA-Public Use
  Company Number: None

PATIENT
  Age: 46 Year
  Sex: Male

DRUGS (1)
  1. TACROLIMUS CAP 0.5MG [Suspect]
     Active Substance: TACROLIMUS
     Dosage: 01-JUL-2017 TO 12-JUN-2018
     Dates: start: 20170612, end: 20180612

REACTIONS (1)
  - Nightmare [None]

NARRATIVE: CASE EVENT DATE: 20180612
